FAERS Safety Report 10489333 (Version 1)
Quarter: 2014Q4

REPORT INFORMATION
  Report Type: Spontaneous
  Country: US (occurrence: US)
  Receive Date: 20141002
  Receipt Date: 20141002
  Transmission Date: 20150528
  Serious: No
  Sender: FDA-Public Use
  Company Number: US-UPSHER-SMITH LABORATORIES, INC.-14001093

PATIENT
  Sex: Female

DRUGS (2)
  1. FORTICAL [Suspect]
     Active Substance: CALCITONIN SALMON
     Indication: FRACTURED SACRUM
     Dosage: UNK, UNK
     Route: 045
     Dates: start: 20140430
  2. FORTICAL [Suspect]
     Active Substance: CALCITONIN SALMON
     Indication: BONE PAIN

REACTIONS (2)
  - Pain in extremity [Not Recovered/Not Resolved]
  - Burning sensation [Not Recovered/Not Resolved]

NARRATIVE: CASE EVENT DATE: 20140430
